FAERS Safety Report 9081400 (Version 1)
Quarter: 2013Q1

REPORT INFORMATION
  Report Type: Report from Study
  Country: US (occurrence: US)
  Receive Date: 20130130
  Receipt Date: 20130130
  Transmission Date: 20140127
  Serious: No
  Sender: FDA-Public Use
  Company Number: US-ABBOTT-12P-163-0966688-00

PATIENT
  Age: 71 Year
  Sex: Female

DRUGS (11)
  1. HUMIRA [Suspect]
     Dosage: DAY 1
     Dates: start: 201207, end: 201207
  2. HUMIRA [Suspect]
     Dosage: DAY 8
  3. HUMIRA [Suspect]
     Dosage: DAY 22
  4. BIAXIN [Suspect]
     Indication: PRODUCT USED FOR UNKNOWN INDICATION
  5. CEFDINIR [Suspect]
     Indication: PRODUCT USED FOR UNKNOWN INDICATION
  6. CIPROFLOXACIN [Suspect]
     Indication: PRODUCT USED FOR UNKNOWN INDICATION
  7. VICODIN [Suspect]
     Indication: PRODUCT USED FOR UNKNOWN INDICATION
  8. ERYTHROMYCIN [Suspect]
     Indication: PRODUCT USED FOR UNKNOWN INDICATION
  9. ENBREL [Suspect]
     Indication: PRODUCT USED FOR UNKNOWN INDICATION
  10. ANTIBIOTICS [Suspect]
     Indication: PRODUCT USED FOR UNKNOWN INDICATION
  11. TACLONEX [Concomitant]
     Indication: PRODUCT USED FOR UNKNOWN INDICATION

REACTIONS (4)
  - Choking sensation [Recovered/Resolved]
  - Injection site pain [Recovered/Resolved]
  - Ear discomfort [Recovered/Resolved]
  - Hearing impaired [Recovered/Resolved]
